FAERS Safety Report 10629577 (Version 2)
Quarter: 2014Q4

REPORT INFORMATION
  Report Type: Spontaneous
  Country: US (occurrence: US)
  Receive Date: 20141205
  Receipt Date: 20141205
  Transmission Date: 20150529
  Serious: No
  Sender: FDA-Public Use
  Company Number: US-BRISTOL-MYERS SQUIBB COMPANY-21350251

PATIENT
  Age: 59 Year
  Sex: Female

DRUGS (15)
  1. SINGULAIR [Concomitant]
     Active Substance: MONTELUKAST SODIUM
  2. FLUOCINOLONE ACETONIDE. [Concomitant]
     Active Substance: FLUOCINOLONE ACETONIDE
  3. WELLBUTRIN XL [Concomitant]
     Active Substance: BUPROPION HYDROCHLORIDE
  4. ABILIFY [Suspect]
     Active Substance: ARIPIPRAZOLE
     Indication: DEPRESSION
  5. XYZAL [Concomitant]
     Active Substance: LEVOCETIRIZINE DIHYDROCHLORIDE
  6. CRESTOR [Concomitant]
     Active Substance: ROSUVASTATIN CALCIUM
  7. VIIBRYD [Concomitant]
     Active Substance: VILAZODONE HYDROCHLORIDE
  8. PATADAY [Concomitant]
     Active Substance: OLOPATADINE HYDROCHLORIDE
  9. LISINOPRIL. [Concomitant]
     Active Substance: LISINOPRIL
  10. HYDROQUINONE. [Concomitant]
     Active Substance: HYDROQUINONE
  11. TRETINOIN. [Concomitant]
     Active Substance: TRETINOIN
  12. BECLOMETHASONE DIPROPIONATE [Concomitant]
     Active Substance: BECLOMETHASONE DIPROPIONATE
  13. PREVIDENT [Concomitant]
     Active Substance: SODIUM FLUORIDE
  14. NEXIUM [Concomitant]
     Active Substance: ESOMEPRAZOLE MAGNESIUM
  15. VENTOLIN [Concomitant]
     Active Substance: ALBUTEROL SULFATE

REACTIONS (1)
  - Wrong technique in drug usage process [Unknown]
